FAERS Safety Report 6538975-7 (Version None)
Quarter: 2010Q1

REPORT INFORMATION
  Report Type: 
  Country: None (occurrence: None)
  Receive Date: 20100115
  Receipt Date: 20100112
  Transmission Date: 20100710
  Serious: Yes (Life-Threatening, Hospitalization)
  Sender: FDA-Public Use
  Company Number: JP-BRISTOL-MYERS SQUIBB COMPANY-14904585

PATIENT
  Age: 6 Decade
  Sex: Male

DRUGS (2)
  1. MAXIPIME [Suspect]
  2. FOSFOMYCIN [Suspect]

REACTIONS (2)
  - MEGACOLON [None]
  - PSEUDOMEMBRANOUS COLITIS [None]
